FAERS Safety Report 19702149 (Version 1)
Quarter: 2021Q3

REPORT INFORMATION
  Report Type: Report from Study
  Country: US (occurrence: US)
  Receive Date: 20210813
  Receipt Date: 20210813
  Transmission Date: 20211014
  Serious: Yes (Hospitalization, Other)
  Sender: FDA-Public Use
  Company Number: US-BAXTER-2021BAX024713

PATIENT
  Age: 23 Year
  Sex: Male
  Weight: 69.4 kg

DRUGS (12)
  1. VINCRISTINE SULFATE. [Suspect]
     Active Substance: VINCRISTINE SULFATE
     Indication: PRODUCT USED FOR UNKNOWN INDICATION
     Dosage: COURSE 1 TO 3
     Route: 065
     Dates: start: 20200925
  2. DOXIL [Suspect]
     Active Substance: DOXORUBICIN HYDROCHLORIDE
     Indication: PRODUCT USED FOR UNKNOWN INDICATION
     Dosage: COURSE 1 TO 3
     Route: 065
     Dates: start: 20200925
  3. VINCRISTINE SULFATE. [Suspect]
     Active Substance: VINCRISTINE SULFATE
     Dosage: COURSE IV: TOTAL DOSE ADMINISTERED THIS COURSE: 8 MG
     Route: 065
     Dates: start: 20210308, end: 20210419
  4. DOXIL [Suspect]
     Active Substance: DOXORUBICIN HYDROCHLORIDE
     Dosage: COURSE IV: TOTAL DOSE ADMINISTERED THIS COURSE: 102 MG
     Route: 065
     Dates: start: 20210308, end: 20210322
  5. ONCASPAR [Suspect]
     Active Substance: PEGASPARGASE
     Indication: PRODUCT USED FOR UNKNOWN INDICATION
     Dosage: COURSE 1 TO 3
     Route: 065
     Dates: start: 20200925
  6. METHOTREXATE SODIUM. [Suspect]
     Active Substance: METHOTREXATE SODIUM
     Dosage: COURSE IV: TOTAL DOSE ADMINISTERED THIS COURSE: 45 MG
     Route: 065
     Dates: start: 20210308, end: 20210412
  7. METHOTREXATE SODIUM. [Suspect]
     Active Substance: METHOTREXATE SODIUM
     Indication: PRODUCT USED FOR UNKNOWN INDICATION
     Dosage: COURSE 1 TO 3
     Route: 065
     Dates: start: 20200925
  8. ONCASPAR [Suspect]
     Active Substance: PEGASPARGASE
     Dosage: COURSE IV OF STUDY TREATMENT: TOTAL DOSE ADMINISTERED THIS COURSE: 350000 UNIT
     Route: 065
     Dates: start: 20210311, end: 20210419
  9. CYTARABINE. [Suspect]
     Active Substance: CYTARABINE
     Dosage: COURSE IV: TOTAL DOSE ADMINISTERED THIS COURSE: 300 MG
     Route: 065
     Dates: start: 20210405, end: 20210412
  10. CYCLOPHOSPHAMIDE FOR INJECTION, USP [Suspect]
     Active Substance: CYCLOPHOSPHAMIDE
     Dosage: COURSE IV: TOTAL DOSE ADMINISTERED THIS COURSE: 2020 MG
     Route: 065
     Dates: start: 20210405, end: 20210405
  11. CYTARABINE. [Suspect]
     Active Substance: CYTARABINE
     Indication: PRODUCT USED FOR UNKNOWN INDICATION
     Dosage: COURSE 1 TO 3
     Route: 065
     Dates: start: 20200925
  12. CYCLOPHOSPHAMIDE FOR INJECTION, USP [Suspect]
     Active Substance: CYCLOPHOSPHAMIDE
     Indication: PRODUCT USED FOR UNKNOWN INDICATION
     Dosage: COURSE 1 TO 3
     Route: 065
     Dates: start: 20200925

REACTIONS (2)
  - Cognitive disorder [Not Recovered/Not Resolved]
  - Leukoencephalopathy [Not Recovered/Not Resolved]
